FAERS Safety Report 5737624-5 (Version None)
Quarter: 2008Q2

REPORT INFORMATION
  Report Type: 
  Country: None (occurrence: None)
  Receive Date: 20080514
  Receipt Date: 20080502
  Transmission Date: 20081010
  Serious: Yes (Hospitalization)
  Sender: FDA-Public Use
  Company Number: AU-ROCHE-562342

PATIENT
  Age: 63 Year
  Sex: Female

DRUGS (7)
  1. CEFTRIAXONE SODIUM [Suspect]
     Indication: DRUG USE FOR UNKNOWN INDICATION
     Route: 042
     Dates: start: 20071128, end: 20071201
  2. ATORVASTATIN [Concomitant]
  3. CARVEDILOL [Concomitant]
  4. ENOXAPARIN SODIUM [Concomitant]
     Route: 058
     Dates: start: 20071204
  5. FUROSEMIDE [Concomitant]
  6. OMEPRAZOLE [Concomitant]
  7. SPIRONOLACTONE [Concomitant]

REACTIONS (4)
  - BLISTER [None]
  - ERYTHEMA [None]
  - FACE OEDEMA [None]
  - RASH MACULO-PAPULAR [None]
